FAERS Safety Report 6484546-0 (Version None)
Quarter: 2009Q4

REPORT INFORMATION
  Report Type: 
  Country: None (occurrence: None)
  Receive Date: 20091203
  Receipt Date: 20091117
  Transmission Date: 20100525
  Serious: Yes (Hospitalization)
  Sender: FDA-Public Use
  Company Number: 002499

PATIENT
  Sex: Female

DRUGS (4)
  1. VIMPAT [Suspect]
     Dosage: (400 MG)
  2. VALPROIC ACID [Suspect]
  3. PHENYTOIN [Suspect]
  4. LYRICA [Suspect]

REACTIONS (1)
  - NEUTROPENIA [None]
